FAERS Safety Report 17155860 (Version 1)
Quarter: 2019Q4

REPORT INFORMATION
  Report Type: Spontaneous
  Country: IT (occurrence: IT)
  Receive Date: 20191215
  Receipt Date: 20191215
  Transmission Date: 20200122
  Serious: Yes (Other)
  Sender: FDA-Public Use
  Company Number: IT-SA-2019SA344115

PATIENT
  Age: 73 Year
  Sex: Female

DRUGS (8)
  1. RANEXA [Concomitant]
     Active Substance: RANOLAZINE
  2. LIXIANA [Concomitant]
     Active Substance: EDOXABAN TOSYLATE
  3. PLAUNAC [Concomitant]
     Active Substance: OLMESARTAN MEDOXOMIL
  4. DIDROGYL [Concomitant]
     Active Substance: CALCIFEDIOL
  5. NEXIUM [Concomitant]
     Active Substance: ESOMEPRAZOLE MAGNESIUM
  6. BISOPROLOL FUMARATE. [Concomitant]
     Active Substance: BISOPROLOL FUMARATE
  7. LEFLUNOMIDE. [Suspect]
     Active Substance: LEFLUNOMIDE
     Indication: RHEUMATOID ARTHRITIS
     Dosage: 20 MG, QD
     Route: 048
     Dates: start: 20190725, end: 20191025
  8. TORVAST [Concomitant]
     Active Substance: ATORVASTATIN

REACTIONS (1)
  - Hypertensive crisis [Recovered/Resolved]

NARRATIVE: CASE EVENT DATE: 20191025
